FAERS Safety Report 24014354 (Version 1)
Quarter: 2024Q2

REPORT INFORMATION
  Report Type: Spontaneous
  Country: US (occurrence: None)
  Receive Date: 20240626
  Receipt Date: 20240626
  Transmission Date: 20240716
  Serious: Yes (Hospitalization, Other)
  Sender: FDA-Public Use
  Company Number: US-Unichem Pharmaceuticals (USA) Inc-UCM202406-000778

PATIENT
  Age: 18 Year
  Sex: Female

DRUGS (1)
  1. LAMOTRIGINE [Suspect]
     Active Substance: LAMOTRIGINE
     Indication: Product used for unknown indication

REACTIONS (7)
  - Pneumonia aspiration [Recovered/Resolved]
  - Brain oedema [Unknown]
  - Encephalitis [Unknown]
  - Human herpesvirus 6 infection reactivation [Unknown]
  - Acute respiratory distress syndrome [Recovered/Resolved]
  - Status epilepticus [Unknown]
  - Drug reaction with eosinophilia and systemic symptoms [Unknown]
